FAERS Safety Report 18110258 (Version 1)
Quarter: 2020Q3

REPORT INFORMATION
  Report Type: Spontaneous
  Country: US (occurrence: US)
  Receive Date: 20200804
  Receipt Date: 20200804
  Transmission Date: 20201103
  Serious: No
  Sender: FDA-Public Use
  Company Number: US-PFIZER INC-2020291700

PATIENT
  Sex: Female

DRUGS (1)
  1. CHANTIX [Suspect]
     Active Substance: VARENICLINE TARTRATE
     Indication: SMOKING CESSATION THERAPY
     Dosage: UNK

REACTIONS (11)
  - Abdominal pain [Unknown]
  - Pain in extremity [Unknown]
  - Arthralgia [Unknown]
  - Anxiety [Unknown]
  - Back pain [Unknown]
  - Fatigue [Unknown]
  - Weight bearing difficulty [Unknown]
  - Movement disorder [Unknown]
  - Depression [Unknown]
  - Neck pain [Unknown]
  - Dyspnoea [Unknown]
